FAERS Safety Report 21568092 (Version 1)
Quarter: 2022Q4

REPORT INFORMATION
  Report Type: Spontaneous
  Country: ES (occurrence: ES)
  Receive Date: 20221108
  Receipt Date: 20221108
  Transmission Date: 20230113
  Serious: Yes (Other)
  Sender: FDA-Public Use
  Company Number: None

PATIENT
  Age: 77 Year
  Sex: Female

DRUGS (3)
  1. PEMETREXED [Suspect]
     Active Substance: PEMETREXED
     Indication: Lung adenocarcinoma
     Dosage: PEMETREXED (2944A), UNIT DOSE : 500 MG/M2, FREQUENCY TIME : 21 DAYS, DURATION :22 DAYS
     Dates: start: 20210215, end: 20210308
  2. CARBOPLATIN [Suspect]
     Active Substance: CARBOPLATIN
     Indication: Lung adenocarcinoma
     Dosage: CARBOPLATINO (2323A)
     Dates: start: 20210215
  3. PEMBROLIZUMAB [Suspect]
     Active Substance: PEMBROLIZUMAB
     Indication: Lung adenocarcinoma
     Dosage: PEMBROLIZUMAB (9069A), UNIT DOSE : 200 MG, FREQUENCY TIME : 21 DAYS, DURATION : 22DAYS
     Dates: start: 20210215, end: 20210308

REACTIONS (1)
  - Toxic skin eruption [Recovered/Resolved]

NARRATIVE: CASE EVENT DATE: 20210308
